FAERS Safety Report 18817323 (Version 2)
Quarter: 2021Q1

REPORT INFORMATION
  Report Type: Spontaneous
  Country: JP (occurrence: JP)
  Receive Date: 20210201
  Receipt Date: 20210208
  Transmission Date: 20210419
  Serious: Yes (Death, Other)
  Sender: FDA-Public Use
  Company Number: JP-DSJP-DSJ-2021-102319AA

PATIENT
  Age: 80 Year
  Sex: Male

DRUGS (13)
  1. MAINTATE [Concomitant]
     Active Substance: BISOPROLOL FUMARATE
     Dosage: 5 MG, QD
     Route: 048
  2. LIXIANA OD TABLETS 15MG [Suspect]
     Active Substance: EDOXABAN TOSYLATE
     Indication: ATRIAL FIBRILLATION
  3. ASPENON [Suspect]
     Active Substance: APRINDINE HYDROCHLORIDE
     Indication: HYPERTROPHIC CARDIOMYOPATHY
     Dosage: 40 MG, BID
     Route: 048
     Dates: start: 20201224, end: 20210112
  4. MEMARY OD TABLETS 5MG [Concomitant]
     Dosage: 5 MG, QD
     Route: 048
  5. ASPENON [Suspect]
     Active Substance: APRINDINE HYDROCHLORIDE
     Indication: ATRIAL FIBRILLATION
  6. CLOPIDOGREL [Concomitant]
     Active Substance: CLOPIDOGREL BISULFATE
     Dosage: 75 MG, QD
     Route: 048
  7. URINORM                            /00227201/ [Concomitant]
     Active Substance: BENZBROMARONE
     Dosage: 50 MG, QD
     Route: 048
  8. FAMOTIDINE. [Concomitant]
     Active Substance: FAMOTIDINE
     Dosage: 40 MG, BID
     Route: 048
  9. LIXIANA OD TABLETS 15MG [Suspect]
     Active Substance: EDOXABAN TOSYLATE
     Indication: HYPERTROPHIC CARDIOMYOPATHY
     Dosage: 15 MG, QD
     Route: 048
     Dates: start: 20201224, end: 20210112
  10. DIART [Concomitant]
     Active Substance: AZOSEMIDE
     Indication: HYPERTROPHIC CARDIOMYOPATHY
     Dosage: 45 MG, QD
     Route: 048
     Dates: end: 20201223
  11. DIART [Concomitant]
     Active Substance: AZOSEMIDE
     Dosage: 45 MG, QD
     Route: 048
     Dates: start: 20210105, end: 20210112
  12. RIVASTACH [Concomitant]
     Active Substance: RIVASTIGMINE
     Dosage: UNK
     Route: 062
  13. DIART [Concomitant]
     Active Substance: AZOSEMIDE
     Indication: ATRIAL FIBRILLATION
     Dosage: 60 MG, QD
     Route: 048
     Dates: start: 20201224, end: 20210104

REACTIONS (1)
  - Drug-induced liver injury [Fatal]

NARRATIVE: CASE EVENT DATE: 20210112
